FAERS Safety Report 16730074 (Version 1)
Quarter: 2019Q3

REPORT INFORMATION
  Report Type: Spontaneous
  Country: IT (occurrence: IT)
  Receive Date: 20190822
  Receipt Date: 20190822
  Transmission Date: 20191005
  Serious: Yes (Life-Threatening, Hospitalization)
  Sender: FDA-Public Use
  Company Number: IT-PACIRA-201500091

PATIENT
  Age: 3 Year
  Sex: Female

DRUGS (2)
  1. DEXAMETHASONE. [Concomitant]
     Active Substance: DEXAMETHASONE
     Indication: PROPHYLAXIS
     Dosage: 0.2 MG/KG, BID FOR 5 DAYS
  2. DEPOCYT [Suspect]
     Active Substance: CYTARABINE
     Indication: ACUTE LEUKAEMIA
     Dosage: 35 MG, EVERY 14 DAYS, 3 ADMINS IN TOTAL
     Dates: start: 20110403

REACTIONS (4)
  - Ataxia [Recovering/Resolving]
  - Aphasia [Recovering/Resolving]
  - Asthenia [Recovering/Resolving]
  - Chorea [Recovering/Resolving]

NARRATIVE: CASE EVENT DATE: 20110403
